FAERS Safety Report 5027428-3 (Version None)
Quarter: 2006Q2

REPORT INFORMATION
  Report Type: 
  Country: None (occurrence: None)
  Receive Date: 20060501
  Receipt Date: 20060119
  Transmission Date: 20061013
  Serious: No
  Sender: FDA-Public Use
  Company Number: 200610398BWH

PATIENT
  Age: 51 Year
  Sex: Male

DRUGS (4)
  1. NEXAVAR [Suspect]
     Indication: COLON CANCER RECURRENT
     Dosage: 400 MG, BID, ORAL
     Route: 048
     Dates: start: 20060111
  2. ERBITUX [Concomitant]
  3. FLUOROURACIL [Concomitant]
  4. AVASTIN [Concomitant]

REACTIONS (1)
  - URTICARIA [None]
